FAERS Safety Report 7551932-7 (Version None)
Quarter: 2011Q2

REPORT INFORMATION
  Report Type: 
  Country: None (occurrence: None)
  Receive Date: 20110616
  Receipt Date: 20110601
  Transmission Date: 20111010
  Serious: Yes (Hospitalization)
  Sender: FDA-Public Use
  Company Number: CA-GENENTECH-319969

PATIENT
  Sex: Female

DRUGS (1)
  1. XOLAIR [Suspect]
     Indication: ASTHMA
     Dosage: 300 MG, 1/MONTH
     Route: 058
     Dates: start: 20061011

REACTIONS (4)
  - ARTHRITIS [None]
  - ABDOMINAL DISCOMFORT [None]
  - DIVERTICULITIS [None]
  - GASTROENTERITIS VIRAL [None]
